FAERS Safety Report 6413120-7 (Version None)
Quarter: 2009Q4

REPORT INFORMATION
  Report Type: 
  Country: None (occurrence: None)
  Receive Date: 20091022
  Receipt Date: 20091022
  Transmission Date: 20100525
  Serious: Yes (Other)
  Sender: FDA-Public Use
  Company Number: None

PATIENT
  Age: 80 Year
  Sex: Female
  Weight: 62.5964 kg

DRUGS (2)
  1. CRESTOR [Suspect]
     Indication: BLOOD CHOLESTEROL INCREASED
     Dosage: 5 MG 1 EVERY OTHER DAY ORAL 6PM
     Route: 048
     Dates: start: 20081224
  2. LIPOFEN [Suspect]
     Indication: BLOOD CHOLESTEROL INCREASED
     Dosage: 150 MG
     Dates: start: 20090826

REACTIONS (4)
  - HYPOAESTHESIA [None]
  - MYALGIA [None]
  - NERVE COMPRESSION [None]
  - PAIN IN EXTREMITY [None]
